FAERS Safety Report 24994396 (Version 1)
Quarter: 2025Q1

REPORT INFORMATION
  Report Type: Spontaneous
  Country: US (occurrence: None)
  Receive Date: 20250220
  Receipt Date: 20250220
  Transmission Date: 20250408
  Serious: Yes (Hospitalization, Other)
  Sender: FDA-CTU
  Company Number: None

PATIENT
  Age: 85 Year

DRUGS (2)
  1. HYALURONIC ACID [Suspect]
     Active Substance: HYALURONIC ACID
     Dates: start: 20250107
  2. KENALOG [Suspect]
     Active Substance: TRIAMCINOLONE ACETONIDE

REACTIONS (4)
  - Injection site rash [None]
  - Injection site necrosis [None]
  - Cardiac disorder [None]
  - Disease complication [None]

NARRATIVE: CASE EVENT DATE: 20250107
